FAERS Safety Report 12476497 (Version 2)
Quarter: 2016Q3

REPORT INFORMATION
  Report Type: Spontaneous
  Country: IT (occurrence: IT)
  Receive Date: 20160617
  Receipt Date: 20160825
  Transmission Date: 20161109
  Serious: Yes (Other)
  Sender: FDA-Public Use
  Company Number: IT-TEVA-667823ACC

PATIENT
  Age: 30 Year
  Sex: Male

DRUGS (8)
  1. CYCLOSPORINE. [Interacting]
     Active Substance: CYCLOSPORINE
     Indication: IMMUNOSUPPRESSANT DRUG THERAPY
     Dosage: 100 MILLIGRAM DAILY;
  2. CLARITHROMYCIN. [Suspect]
     Active Substance: CLARITHROMYCIN
     Indication: IMMUNOSUPPRESSANT DRUG THERAPY
     Dosage: 1000 MILLIGRAM DAILY;
  3. CLARITHROMYCIN. [Interacting]
     Active Substance: CLARITHROMYCIN
     Dosage: 500 MILLIGRAM DAILY;
  4. CYCLOSPORINE. [Interacting]
     Active Substance: CYCLOSPORINE
     Dosage: 225 MILLIGRAM DAILY;
  5. EVEROLIMUS [Interacting]
     Active Substance: EVEROLIMUS
     Indication: IMMUNOSUPPRESSANT DRUG THERAPY
     Dosage: .75 MILLIGRAM DAILY;
  6. EVEROLIMUS [Interacting]
     Active Substance: EVEROLIMUS
     Dosage: .5 MILLIGRAM DAILY;
  7. ETHAMBUTOL [Interacting]
     Active Substance: ETHAMBUTOL HYDROCHLORIDE
     Indication: ATYPICAL MYCOBACTERIAL INFECTION
     Dosage: 1200 MILLIGRAM DAILY;
  8. RIFAMPICIN [Interacting]
     Active Substance: RIFAMPIN
     Indication: ATYPICAL MYCOBACTERIAL INFECTION
     Dosage: 600 MILLIGRAM DAILY;

REACTIONS (5)
  - Atypical mycobacterial infection [Unknown]
  - Drug interaction [Unknown]
  - Transaminases increased [Unknown]
  - Immunosuppressant drug level decreased [Unknown]
  - Nausea [Unknown]
